FAERS Safety Report 7842286-7 (Version None)
Quarter: 2011Q4

REPORT INFORMATION
  Report Type: 
  Country: None (occurrence: None)
  Receive Date: 20111025
  Receipt Date: 20111014
  Transmission Date: 20120403
  Serious: Yes (Hospitalization)
  Sender: FDA-Public Use
  Company Number: BR-JNJFOC-20110104056

PATIENT
  Sex: Male
  Weight: 103.7 kg

DRUGS (10)
  1. SIMVASTATIN [Concomitant]
     Dates: start: 20100101
  2. METFORMIN HCL [Concomitant]
     Dates: start: 20091002
  3. NEXIUM [Concomitant]
     Indication: GASTROINTESTINAL DISORDER THERAPY
     Dosage: 20 OR 40MG/DAY
     Route: 048
     Dates: start: 20081008
  4. ASPIRIN [Concomitant]
     Dates: start: 20080926
  5. HYDROCHLOROTHIAZIDE [Concomitant]
     Dates: start: 20091002
  6. ATENOLOL [Concomitant]
     Dates: start: 20091002
  7. IBUPROFEN [Suspect]
     Indication: OSTEOARTHRITIS
     Route: 048
     Dates: start: 20081008, end: 20100419
  8. ENALAPRIL MALEATE [Concomitant]
     Dates: start: 20091002
  9. AMLODIPINE [Concomitant]
     Dates: start: 20090925
  10. AMITRIPTYLINE HCL [Concomitant]
     Dates: start: 20071030

REACTIONS (1)
  - ATRIOVENTRICULAR BLOCK SECOND DEGREE [None]
